FAERS Safety Report 15692437 (Version 1)
Quarter: 2018Q4

REPORT INFORMATION
  Report Type: Spontaneous
  Country: CA (occurrence: US)
  Receive Date: 20181206
  Receipt Date: 20181206
  Transmission Date: 20190205
  Serious: Yes (Other)
  Sender: FDA-Public Use
  Company Number: CA-PURDUE-USA-2017-0141724

PATIENT
  Sex: Female

DRUGS (2)
  1. HYDROCODONE BITARTRATE (SIMILAR TO NDA 206627) [Suspect]
     Active Substance: HYDROCODONE BITARTRATE
     Indication: PAIN
  2. HYDROCODONE BITARTRATE (SIMILAR TO NDA 206627) [Suspect]
     Active Substance: HYDROCODONE BITARTRATE
     Indication: SPINAL COLUMN INJURY
     Dosage: UNK
     Route: 048

REACTIONS (5)
  - Energy increased [Unknown]
  - Euphoric mood [Unknown]
  - Intentional product use issue [Unknown]
  - Dependence [Recovering/Resolving]
  - Drug abuse [Recovering/Resolving]
